FAERS Safety Report 20439800 (Version 1)
Quarter: 2022Q1

REPORT INFORMATION
  Report Type: Spontaneous
  Country: None (occurrence: CA)
  Receive Date: 20220207
  Receipt Date: 20220207
  Transmission Date: 20220424
  Serious: Yes (Other)
  Sender: FDA-Public Use
  Company Number: CA-B.Braun Medical Inc.-2124693

PATIENT
  Age: 55 Year
  Sex: Female
  Weight: 49 kg

DRUGS (19)
  1. POTASSIUM CHLORIDE [Suspect]
     Active Substance: POTASSIUM CHLORIDE
  2. CANDESARTAN [Suspect]
     Active Substance: CANDESARTAN
  3. DEXAMETHASONE [Suspect]
     Active Substance: DEXAMETHASONE
  4. EPLERENONE [Suspect]
     Active Substance: EPLERENONE
  5. FUROSEMIDE [Suspect]
     Active Substance: FUROSEMIDE
  6. METOLAZONE [Suspect]
     Active Substance: METOLAZONE
  7. POMALIDOMIDE [Suspect]
     Active Substance: POMALIDOMIDE
  8. ACYCLOVIR [Concomitant]
     Active Substance: ACYCLOVIR
  9. BORTEZOMIB [Concomitant]
     Active Substance: BORTEZOMIB
  10. ENTECAVIR [Concomitant]
     Active Substance: ENTECAVIR
  11. FEBUXOSTAT [Concomitant]
     Active Substance: FEBUXOSTAT
  12. FILGRASTIM [Concomitant]
     Active Substance: FILGRASTIM
  13. LACTULOSE [Concomitant]
     Active Substance: LACTULOSE
  14. LORAZEPAM [Concomitant]
     Active Substance: LORAZEPAM
  15. NEUPOGEN [Concomitant]
     Active Substance: FILGRASTIM
  16. ONDANSETRON [Concomitant]
     Active Substance: ONDANSETRON
  17. PANTOPRAZOLE [Concomitant]
     Active Substance: PANTOPRAZOLE
  18. PROCHLORPERAZINE [Concomitant]
     Active Substance: PROCHLORPERAZINE
  19. SENOKOT [Concomitant]
     Active Substance: SENNOSIDES

REACTIONS (3)
  - Cardiac failure [Recovered/Resolved]
  - Cardiac failure congestive [Recovered/Resolved]
  - Condition aggravated [Recovered/Resolved]
